FAERS Safety Report 7368784-0 (Version None)
Quarter: 2011Q1

REPORT INFORMATION
  Report Type: 
  Country: None (occurrence: None)
  Receive Date: 20110323
  Receipt Date: 20110318
  Transmission Date: 20110831
  Serious: Yes (Hospitalization)
  Sender: FDA-Public Use
  Company Number: US-ABBOTT-11P-163-0705473-00

PATIENT
  Age: 26 Year
  Sex: Female

DRUGS (6)
  1. AMBIEN [Concomitant]
     Indication: PRODUCT USED FOR UNKNOWN INDICATION
     Dosage: NOT REPORTED.
  2. SOMA [Concomitant]
     Indication: MUSCLE SPASMS
     Route: 048
  3. HUMIRA [Suspect]
     Indication: CROHN'S DISEASE
     Route: 058
     Dates: start: 20101101
  4. VICODIN [Concomitant]
     Indication: PRODUCT USED FOR UNKNOWN INDICATION
     Dosage: 7.5/750 PRN
     Route: 048
  5. NEURONTIN [Concomitant]
     Indication: PRODUCT USED FOR UNKNOWN INDICATION
     Dosage: NOT REPORTED.
     Route: 048
  6. XANAX [Concomitant]
     Indication: ANXIETY
     Route: 048

REACTIONS (8)
  - MALAISE [None]
  - CHEST DISCOMFORT [None]
  - DYSPNOEA [None]
  - CHOLELITHIASIS [None]
  - INTESTINAL OBSTRUCTION [None]
  - SKIN DISCOLOURATION [None]
  - CROHN'S DISEASE [None]
  - PARAESTHESIA [None]
